FAERS Safety Report 4278144-7 (Version None)
Quarter: 2004Q1

REPORT INFORMATION
  Report Type: 
  Country: None (occurrence: None)
  Receive Date: 20040121
  Receipt Date: 20040113
  Transmission Date: 20041129
  Serious: Yes (Other)
  Sender: FDA-Public Use
  Company Number: CA-JNJFOC-20040102466

PATIENT

DRUGS (4)
  1. REMICADE [Suspect]
     Indication: DRUG USE FOR UNKNOWN INDICATION
     Dosage: INTRAVENOUS
     Route: 042
  2. CAMPATH IH (ALL OTHER THERAPEUTIC PRODUCTS) [Concomitant]
  3. TACROLIMUS (TACROLIMUS) [Concomitant]
  4. SIROLIMUS (SIROLIMUS) [Concomitant]

REACTIONS (1)
  - NERVOUS SYSTEM DISORDER [None]
